FAERS Safety Report 5479091-5 (Version None)
Quarter: 2007Q4

REPORT INFORMATION
  Report Type: 
  Country: None (occurrence: None)
  Receive Date: 20071006
  Receipt Date: 20070926
  Transmission Date: 20080405
  Serious: Yes (Life-Threatening)
  Sender: FDA-Public Use
  Company Number: GB-PFIZER INC-2007081491

PATIENT
  Age: 48 Year
  Sex: Male
  Weight: 108 kg

DRUGS (7)
  1. CHAMPIX [Suspect]
     Indication: SMOKING CESSATION THERAPY
     Route: 048
  2. CO-DYDRAMOL [Concomitant]
     Indication: BACK PAIN
     Dosage: FREQ:TWO DOSE AS NECESSARY
     Route: 048
  3. MONTELUKAST SODIUM [Concomitant]
     Indication: ASTHMA
     Route: 048
     Dates: start: 20070517, end: 20070617
  4. ALL OTHER THERAPEUTIC PRODUCTS [Concomitant]
     Indication: TRANSGENDER HORMONAL THERAPY
     Route: 048
     Dates: start: 20070425, end: 20070617
  5. OMEPRAZOLE [Concomitant]
     Indication: DYSPEPSIA
     Route: 048
  6. SALBUTAMOL [Concomitant]
     Indication: ASTHMA
     Route: 055
  7. SERETIDE [Concomitant]
     Indication: ASTHMA
     Route: 055

REACTIONS (2)
  - OVERDOSE [None]
  - SUICIDAL IDEATION [None]
